FAERS Safety Report 6013334-4 (Version None)
Quarter: 2008Q4

REPORT INFORMATION
  Report Type: 
  Country: None (occurrence: None)
  Receive Date: 20081216
  Receipt Date: 20080731
  Transmission Date: 20090506
  Serious: Yes (Other)
  Sender: FDA-Public Use
  Company Number: US-WYE-H05339508

PATIENT
  Age: 54 Year
  Sex: Female
  Weight: 113.5 kg

DRUGS (2)
  1. EFFEXOR XR [Suspect]
     Indication: ANXIETY
     Dosage: 150 NG 1X PER 1 DAY, ORAL
     Route: 048
     Dates: start: 20080701
  2. EFFEXOR XR [Suspect]
     Indication: DEPRESSION
     Dosage: 150 NG 1X PER 1 DAY, ORAL
     Route: 048
     Dates: start: 20080701

REACTIONS (6)
  - ANXIETY [None]
  - CRYING [None]
  - DEPRESSION [None]
  - DRUG WITHDRAWAL SYNDROME [None]
  - PRODUCT QUALITY ISSUE [None]
  - UNEVALUABLE EVENT [None]
